FAERS Safety Report 6348780-2 (Version None)
Quarter: 2009Q3

REPORT INFORMATION
  Report Type: 
  Country: None (occurrence: None)
  Receive Date: 20090911
  Receipt Date: 20090901
  Transmission Date: 20100115
  Serious: Yes (Hospitalization, Other)
  Sender: FDA-Public Use
  Company Number: US-JNJFOC-20090900805

PATIENT
  Sex: Male
  Weight: 65.77 kg

DRUGS (5)
  1. REMICADE [Suspect]
     Dosage: DECREASED TO 2 INFUSIONS/YEAR
     Route: 042
  2. REMICADE [Suspect]
     Indication: CROHN'S DISEASE
     Dosage: STARTED INFLIXIMAB 8-9 YEARS AGO
     Route: 042
  3. PENTASA [Concomitant]
     Indication: CROHN'S DISEASE
  4. SINGULAIR [Concomitant]
     Indication: ASTHMA
  5. INHALERS [Concomitant]
     Indication: ASTHMA

REACTIONS (6)
  - CARDIAC FAILURE CONGESTIVE [None]
  - CROHN'S DISEASE [None]
  - IMPLANTABLE DEFIBRILLATOR INSERTION [None]
  - INTESTINAL OBSTRUCTION [None]
  - MITRAL VALVE DISEASE [None]
  - VIRAL INFECTION [None]
